FAERS Safety Report 5143360-9 (Version None)
Quarter: 2006Q4

REPORT INFORMATION
  Report Type: 
  Country: None (occurrence: None)
  Receive Date: 20061103
  Receipt Date: 20061023
  Transmission Date: 20070319
  Serious: Yes (Hospitalization, Other)
  Sender: FDA-Public Use
  Company Number: US-JNJFOC-20060307905

PATIENT
  Sex: Female
  Weight: 60.78 kg

DRUGS (20)
  1. RISPERDAL [Suspect]
  2. RISPERDAL [Suspect]
  3. RISPERDAL [Suspect]
     Indication: SCHIZOPHRENIA
  4. ZYPREXA [Suspect]
     Indication: DRUG USE FOR UNKNOWN INDICATION
  5. LITHIUM CARBONATE [Concomitant]
  6. TRAZODONE HCL [Concomitant]
  7. XANAX [Concomitant]
  8. REGLAN [Concomitant]
  9. PROTONIX [Concomitant]
  10. XANAX [Concomitant]
  11. LORTAB [Concomitant]
  12. ATENOLOL [Concomitant]
  13. ASPIRIN [Concomitant]
  14. ESTRADIOL INJ [Concomitant]
  15. DEPAKOTE [Concomitant]
  16. TOPAMAX [Concomitant]
     Indication: MIGRAINE
  17. TOPAMAX [Concomitant]
     Indication: CONVULSION
  18. FOLIC ACID [Concomitant]
  19. FLUOXETINE [Concomitant]
  20. FLAGYL [Concomitant]

REACTIONS (5)
  - GASTROOESOPHAGEAL REFLUX DISEASE [None]
  - HOMICIDAL IDEATION [None]
  - PANCREATITIS [None]
  - SELF INJURIOUS BEHAVIOUR [None]
  - SUICIDAL IDEATION [None]
